FAERS Safety Report 5383382-6 (Version None)
Quarter: 2007Q3

REPORT INFORMATION
  Report Type: 
  Country: None (occurrence: None)
  Receive Date: 20070710
  Receipt Date: 20070702
  Transmission Date: 20080115
  Serious: Yes (Other)
  Sender: FDA-Public Use
  Company Number: JP-ASTRAZENECA-2007AP04078

PATIENT
  Age: 59 Year
  Sex: Male

DRUGS (4)
  1. CRESTOR [Suspect]
     Indication: HYPERCHOLESTEROLAEMIA
     Route: 048
     Dates: start: 20070512, end: 20070625
  2. DASEN [Suspect]
     Route: 048
  3. EPL [Concomitant]
     Route: 048
     Dates: start: 20061215
  4. CLARITHROMYCIN [Concomitant]
     Route: 048

REACTIONS (1)
  - DRUG ERUPTION [None]
